FAERS Safety Report 15120208 (Version 5)
Quarter: 2018Q4

REPORT INFORMATION
  Report Type: Spontaneous
  Country: US (occurrence: US)
  Receive Date: 20180709
  Receipt Date: 20181001
  Transmission Date: 20190204
  Serious: No
  Sender: FDA-Public Use
  Company Number: US-JNJFOC-20180637682

PATIENT
  Age: 73 Year
  Sex: Male
  Weight: 124.74 kg

DRUGS (2)
  1. RISPERDAL CONSTA [Suspect]
     Active Substance: RISPERIDONE
     Indication: SCHIZOPHRENIA
     Route: 030
  2. ELOCON [Concomitant]
     Active Substance: MOMETASONE FUROATE
     Indication: RASH
     Route: 065

REACTIONS (3)
  - Syringe issue [Unknown]
  - Product dose omission [Unknown]
  - Device breakage [Unknown]

NARRATIVE: CASE EVENT DATE: 20180627
